FAERS Safety Report 22274534 (Version 1)
Quarter: 2023Q2

REPORT INFORMATION
  Report Type: Spontaneous
  Country: US (occurrence: US)
  Receive Date: 20230502
  Receipt Date: 20230502
  Transmission Date: 20230722
  Serious: Yes (Hospitalization, Other)
  Sender: FDA-Public Use
  Company Number: US-Fresenius Medical Care Renal Therapies Group-FMC-2304-000434

PATIENT
  Age: 53 Year
  Sex: Female
  Weight: 140 kg

DRUGS (4)
  1. DELFLEX WITH DEXTROSE 1.5% LOW MAGNESIUM LOW CALCIUM [Suspect]
     Active Substance: CALCIUM CHLORIDE\DEXTROSE\MAGNESIUM CHLORIDE\SODIUM CHLORIDE\SODIUM LACTATE
     Indication: End stage renal disease
     Dosage: 3000 ML FOR 5 CYCLES WITH A LAST FILL OF 2000 ML AND NO DAYTIME EXCHANGE; REQUIRING PD THERAPY FOR
     Route: 033
  2. DELFLEX WITH DEXTROSE 2.5% LOW MAGNESIUM LOW CALCIUM [Suspect]
     Active Substance: CALCIUM CHLORIDE\DEXTROSE\MAGNESIUM CHLORIDE\SODIUM CHLORIDE\SODIUM LACTATE
     Indication: End stage renal disease
     Dosage: 3000 ML FOR 5 CYCLES WITH A LAST FILL OF 2000 ML AND NO DAYTIME EXCHANGE; REQUIRING PD THERAPY FOR
     Route: 033
  3. VANCOMYCIN [Suspect]
     Active Substance: VANCOMYCIN
     Indication: Peritonitis bacterial
     Dosage: 2000 MG EVERY 5 DAYS FOR TWO WEEKS
  4. CEFTAZIDIME [Suspect]
     Active Substance: CEFTAZIDIME
     Indication: Peritonitis bacterial
     Dosage: 2000 MG DAILY FOR TWO WEEKS.

REACTIONS (1)
  - Peritonitis bacterial [Recovering/Resolving]
